FAERS Safety Report 8539210-0 (Version None)
Quarter: 2012Q3

REPORT INFORMATION
  Report Type: 
  Country: None (occurrence: None)
  Receive Date: 20120726
  Receipt Date: 20120723
  Transmission Date: 20120928
  Serious: Yes (Other)
  Sender: FDA-Public Use
  Company Number: BR-PFIZER INC-2012177605

PATIENT
  Age: 54 Year
  Sex: Female

DRUGS (1)
  1. ALPRAZOLAM [Suspect]
     Indication: DEPRESSION
     Dosage: STRENGTH 1 MG, ONE TABLET DAILY
     Route: 048
     Dates: start: 20120528

REACTIONS (1)
  - PANIC DISORDER [None]
